FAERS Safety Report 9652879 (Version 3)
Quarter: 2013Q4

REPORT INFORMATION
  Report Type: Spontaneous
  Country: AU (occurrence: AU)
  Receive Date: 20131029
  Receipt Date: 20131204
  Transmission Date: 20140711
  Serious: Yes (Other)
  Sender: FDA-Public Use
  Company Number: AU-ASTRAZENECA-2011SE09350

PATIENT
  Age: 68 Year
  Sex: Male

DRUGS (6)
  1. ZOLADEX [Suspect]
     Indication: PROSTATE CANCER
     Route: 058
     Dates: start: 20100510
  2. COSUDEX [Suspect]
     Indication: PROSTATE CANCER
     Route: 048
     Dates: start: 20131017
  3. ANTI EMETIC [Suspect]
     Indication: NAUSEA
  4. OXYCONTIN [Concomitant]
  5. OXYNORM [Concomitant]
  6. EFEXOR [Concomitant]

REACTIONS (10)
  - Metastatic neoplasm [Unknown]
  - Malignant neoplasm progression [Unknown]
  - Type 2 diabetes mellitus [Not Recovered/Not Resolved]
  - Angiopathy [Unknown]
  - Dizziness [Unknown]
  - Nausea [Unknown]
  - Hyperglycaemia [Not Recovered/Not Resolved]
  - Back pain [Not Recovered/Not Resolved]
  - Hot flush [Not Recovered/Not Resolved]
  - Arthralgia [Unknown]
